FAERS Safety Report 8591594-3 (Version None)
Quarter: 2012Q3

REPORT INFORMATION
  Report Type: 
  Country: None (occurrence: None)
  Receive Date: 20120814
  Receipt Date: 20120809
  Transmission Date: 20120928
  Serious: Yes (Other)
  Sender: FDA-Public Use
  Company Number: US-PFIZER INC-2012194879

PATIENT
  Age: 49 Year
  Sex: Female
  Weight: 99.773 kg

DRUGS (1)
  1. LYRICA [Suspect]
     Indication: NEUROPATHY PERIPHERAL
     Dosage: 75 MG, 2X/DAY
     Route: 048
     Dates: start: 20120807

REACTIONS (3)
  - FATIGUE [None]
  - DIZZINESS [None]
  - BALANCE DISORDER [None]
